FAERS Safety Report 6840292-2 (Version None)
Quarter: 2010Q3

REPORT INFORMATION
  Report Type: 
  Country: None (occurrence: None)
  Receive Date: 20100714
  Receipt Date: 20100709
  Transmission Date: 20110219
  Serious: Yes (Hospitalization, Disabling, Other)
  Sender: FDA-Public Use
  Company Number: US-MERCK-0810USA04095

PATIENT
  Age: 62 Year
  Sex: Female
  Weight: 91 kg

DRUGS (4)
  1. FOSAMAX [Suspect]
     Indication: OSTEOPOROSIS
     Route: 048
     Dates: end: 20080908
  2. FOSAMAX [Suspect]
     Route: 048
     Dates: start: 19980101
  3. FOSAMAX [Suspect]
     Indication: OSTEOARTHRITIS
     Route: 048
     Dates: end: 20080908
  4. FOSAMAX [Suspect]
     Route: 048
     Dates: start: 19980101

REACTIONS (31)
  - ARTHROPATHY [None]
  - BLOOD CHOLESTEROL INCREASED [None]
  - BRAIN NEOPLASM [None]
  - BRONCHITIS CHRONIC [None]
  - CARDIAC MURMUR [None]
  - CARPAL TUNNEL SYNDROME [None]
  - DENTAL CARIES [None]
  - DEPRESSION [None]
  - DIABETES MELLITUS [None]
  - DRY MOUTH [None]
  - FALL [None]
  - FIBROMYALGIA [None]
  - FRACTURE [None]
  - GOUT [None]
  - HIATUS HERNIA [None]
  - HYPERLIPIDAEMIA [None]
  - JAW DISORDER [None]
  - NASAL DISCOMFORT [None]
  - NEUROPATHY PERIPHERAL [None]
  - ORAL DISORDER [None]
  - ORAL TORUS [None]
  - OSTEONECROSIS [None]
  - OVERDOSE [None]
  - PAIN IN JAW [None]
  - PERONEAL NERVE PALSY [None]
  - RHEUMATOID ARTHRITIS [None]
  - ROAD TRAFFIC ACCIDENT [None]
  - SPINAL COMPRESSION FRACTURE [None]
  - SYSTEMIC LUPUS ERYTHEMATOSUS [None]
  - TOOTH DISORDER [None]
  - TOOTHACHE [None]
